FAERS Safety Report 5136182-6 (Version None)
Quarter: 2006Q4

REPORT INFORMATION
  Report Type: 
  Country: None (occurrence: None)
  Receive Date: 20061027
  Receipt Date: 20060627
  Transmission Date: 20070319
  Serious: Yes (Hospitalization, Disabling, Other)
  Sender: FDA-Public Use
  Company Number: 2006UW13639

PATIENT
  Sex: Male
  Weight: 118.2 kg

DRUGS (62)
  1. SEROQUEL [Suspect]
     Route: 048
     Dates: start: 20040423
  2. SEROQUEL [Suspect]
     Route: 048
     Dates: start: 20040209
  3. SEROQUEL [Suspect]
     Route: 048
     Dates: start: 20040201
  4. SEROQUEL [Suspect]
     Route: 048
     Dates: start: 20031219
  5. SEROQUEL [Suspect]
     Route: 048
     Dates: start: 20031029
  6. SEROQUEL [Suspect]
     Route: 048
     Dates: start: 20021004
  7. SEROQUEL [Suspect]
     Dosage: CHANGED FROM 50 MG BID
     Route: 048
     Dates: start: 20020220
  8. SEROQUEL [Suspect]
     Route: 048
     Dates: start: 20020220
  9. RISPERDAL [Suspect]
     Dates: start: 20011201
  10. RISPERDAL [Concomitant]
     Dates: start: 20020109
  11. ZYPREXA [Concomitant]
     Dates: start: 20010831
  12. ZYPREXA [Concomitant]
     Dates: start: 20011010
  13. ZYPREXA [Concomitant]
     Dates: start: 20011109
  14. GLYBURIDE [Concomitant]
     Dates: start: 20050111
  15. GLYBURIDE [Concomitant]
     Dates: start: 20040423
  16. GLYBURIDE [Concomitant]
     Dates: start: 20020401
  17. GLYBURIDE [Concomitant]
     Dates: start: 20000101, end: 20030101
  18. TOPROL-XL [Concomitant]
     Dates: start: 20010511
  19. AMOXIL [Concomitant]
     Dates: start: 20010511
  20. CLONIDINE [Concomitant]
     Dates: start: 20040423
  21. CLONIDINE [Concomitant]
     Dates: start: 20010511
  22. PROZAC [Concomitant]
     Dates: start: 20010720
  23. VALIUM [Concomitant]
     Dates: start: 20010901
  24. VALIUM [Concomitant]
     Dates: start: 20010720
  25. CAPOTEN [Concomitant]
     Dates: start: 20010720
  26. COLACE [Concomitant]
     Dates: start: 20020610
  27. ADVAIR HFA [Concomitant]
  28. BEXTRA [Concomitant]
  29. PREVACID [Concomitant]
     Dates: start: 20010901
  30. ZYRTEC [Concomitant]
     Dates: start: 20010901
  31. BUSPIRONE HCL [Concomitant]
     Dates: start: 20010901
  32. BUSPIRONE HCL [Concomitant]
     Dates: start: 20010901
  33. DIAZEPAM [Concomitant]
     Route: 048
  34. IMIPRAMINE [Concomitant]
     Dates: start: 20011201
  35. IMIPRAMINE [Concomitant]
     Dates: start: 20010901
  36. PAXIL [Concomitant]
     Dates: start: 20011201
  37. WELLBUTRIN SR [Concomitant]
  38. HYDROCODONE [Concomitant]
  39. FLUCONAZOLE [Concomitant]
     Indication: OESOPHAGEAL CANDIDIASIS
  40. ULTRACET [Concomitant]
     Dates: start: 20040423
  41. KLONOPIN [Concomitant]
     Dates: start: 20050111
  42. KLONOPIN [Concomitant]
     Dates: start: 20040423
  43. FLEXERIL [Concomitant]
     Dates: start: 20040423
  44. METHOCARBAMOL [Concomitant]
     Route: 048
     Dates: start: 20040423
  45. DOCUSATE [Concomitant]
     Dates: start: 20040423
  46. TOPAMAX [Concomitant]
     Route: 048
     Dates: start: 20040423
  47. ACTOS [Concomitant]
     Dates: start: 20040423
  48. SINGULAIR [Concomitant]
     Dates: start: 20040423
  49. ALLEGRA [Concomitant]
     Dates: start: 20040423
  50. DILTIAZEM GR [Concomitant]
     Dates: start: 20050111
  51. RANITIDINE [Concomitant]
     Dates: start: 20050111
  52. COLCHICINE [Concomitant]
     Dates: start: 20050111
  53. LEXAPRO [Concomitant]
     Dates: start: 20050111
  54. REMERON [Concomitant]
     Dates: start: 20050111
  55. DOXEPIN HCL [Concomitant]
     Dates: start: 20050111
  56. AVINZA [Concomitant]
     Dates: start: 20050111
  57. ADVAIR HFA [Concomitant]
     Dosage: 250/50
     Dates: start: 20050111
  58. GABITRIL [Concomitant]
     Dates: start: 20050111
  59. GABITRIL [Concomitant]
     Dates: start: 20050111
  60. NORVASC [Concomitant]
     Dates: start: 20050111
  61. CYMBALTA [Concomitant]
     Dates: start: 20050111
  62. CYMBALTA [Concomitant]
     Dates: start: 20050111

REACTIONS (18)
  - BLOOD PRESSURE DECREASED [None]
  - BLOOD PRESSURE INCREASED [None]
  - CANDIDIASIS [None]
  - CHEST PAIN [None]
  - CHOLELITHIASIS [None]
  - CHROMATURIA [None]
  - DIABETES MELLITUS [None]
  - DIZZINESS [None]
  - DYSURIA [None]
  - HYPERGLYCAEMIA [None]
  - HYPERTENSION [None]
  - HYPOAESTHESIA [None]
  - MEMORY IMPAIRMENT [None]
  - PANIC ATTACK [None]
  - RENAL DISORDER [None]
  - SOMNOLENCE [None]
  - TOOTH EXTRACTION [None]
  - VISUAL ACUITY REDUCED [None]
